FAERS Safety Report 18066934 (Version 1)
Quarter: 2020Q3

REPORT INFORMATION
  Report Type: Report from Study
  Country: None (occurrence: IT)
  Receive Date: 20200724
  Receipt Date: 20200724
  Transmission Date: 20201103
  Serious: Yes (Hospitalization)
  Sender: FDA-Public Use
  Company Number: IT-ABBVIE-20K-083-3495922-00

PATIENT
  Age: 76 Year
  Sex: Female

DRUGS (1)
  1. DUODOPA [Suspect]
     Active Substance: CARBIDOPA\LEVODOPA
     Indication: PARKINSON^S DISEASE
     Dosage: MD: 8,5+3??CR: 4,4,??ED: 2,5
     Route: 050
     Dates: start: 20181108

REACTIONS (3)
  - Malaise [Unknown]
  - Loss of consciousness [Unknown]
  - Unevaluable event [Unknown]

NARRATIVE: CASE EVENT DATE: 202007
